FAERS Safety Report 18503635 (Version 1)
Quarter: 2020Q4

REPORT INFORMATION
  Report Type: Report from Study
  Country: None (occurrence: IT)
  Receive Date: 20201113
  Receipt Date: 20201113
  Transmission Date: 20210114
  Serious: Yes (Hospitalization)
  Sender: FDA-Public Use
  Company Number: IT-ABBVIE-20K-083-3526340-00

PATIENT
  Age: 75 Year
  Weight: 60 kg

DRUGS (2)
  1. VENETOCLAX. [Suspect]
     Active Substance: VENETOCLAX
     Indication: ACUTE MYELOID LEUKAEMIA
     Route: 048
     Dates: start: 20200714, end: 20200810
  2. AZACITIDINA ACCORD [Concomitant]
     Indication: ACUTE MYELOID LEUKAEMIA
     Route: 058
     Dates: start: 20200713, end: 20200721

REACTIONS (3)
  - Hyperbilirubinaemia [Not Recovered/Not Resolved]
  - International normalised ratio increased [Not Recovered/Not Resolved]
  - Asthenia [Not Recovered/Not Resolved]

NARRATIVE: CASE EVENT DATE: 20200810
